FAERS Safety Report 6135938-0 (Version None)
Quarter: 2009Q1

REPORT INFORMATION
  Report Type: 
  Country: None (occurrence: None)
  Receive Date: 20090329
  Receipt Date: 20080416
  Transmission Date: 20090719
  Serious: Yes (Other)
  Sender: FDA-Public Use
  Company Number: US-BAUSCH-2008BL001705

PATIENT
  Age: 74 Year
  Sex: Male

DRUGS (6)
  1. ALREX [Suspect]
     Indication: KERATITIS HERPETIC
     Route: 047
  2. ALREX [Suspect]
     Route: 047
     Dates: start: 20080313, end: 20080318
  3. CRESTOR [Concomitant]
  4. NAPROXEN [Concomitant]
  5. BENICAR /USA/ [Concomitant]
  6. HYDROCHLOROTHIAZIDE [Concomitant]

REACTIONS (3)
  - KERATITIS BACTERIAL [None]
  - MEDICATION ERROR [None]
  - ULCERATIVE KERATITIS [None]
